FAERS Safety Report 9934977 (Version 1)
Quarter: 2014Q1

REPORT INFORMATION
  Report Type: Spontaneous
  Country: US (occurrence: ES)
  Receive Date: 20140228
  Receipt Date: 20140228
  Transmission Date: 20141002
  Serious: Yes (Hospitalization)
  Sender: FDA-Public Use
  Company Number: ES-FRI-1000054651

PATIENT
  Age: 77 Year
  Sex: Male
  Weight: 85 kg

DRUGS (5)
  1. ROFLUMILAST [Suspect]
     Indication: CHRONIC OBSTRUCTIVE PULMONARY DISEASE
     Dosage: 500 MCG
     Route: 048
     Dates: start: 201202, end: 2012
  2. ROFLUMILAST [Suspect]
     Dosage: 500 MCG
     Route: 048
     Dates: start: 20121225
  3. ROFLUMILAST [Suspect]
  4. SPIRIVA [Concomitant]
  5. RILAST [Concomitant]

REACTIONS (4)
  - Renal surgery [Not Recovered/Not Resolved]
  - Inflammation [Not Recovered/Not Resolved]
  - Food aversion [Recovered/Resolved]
  - Diarrhoea [Recovered/Resolved]
